FAERS Safety Report 5227022-5 (Version None)
Quarter: 2007Q1

REPORT INFORMATION
  Report Type: 
  Country: None (occurrence: None)
  Receive Date: 20070202
  Receipt Date: 20070123
  Transmission Date: 20070707
  Serious: Yes (Hospitalization)
  Sender: FDA-Public Use
  Company Number: DE-AMGEN-UK206116

PATIENT
  Sex: Male

DRUGS (2)
  1. KEPIVANCE [Suspect]
     Indication: CHEMOTHERAPY
     Route: 042
     Dates: start: 20061209, end: 20061217
  2. MELPHALAN [Suspect]
     Route: 065
     Dates: start: 20061212, end: 20061213

REACTIONS (6)
  - DYSGEUSIA [None]
  - ERYTHEMA [None]
  - PRURITUS [None]
  - PYREXIA [None]
  - SKIN DISCOLOURATION [None]
  - TONGUE DISORDER [None]
